FAERS Safety Report 5993543-0 (Version None)
Quarter: 2008Q4

REPORT INFORMATION
  Report Type: 
  Country: None (occurrence: None)
  Receive Date: 20081212
  Receipt Date: 20081203
  Transmission Date: 20090506
  Serious: Yes (Hospitalization)
  Sender: FDA-Public Use
  Company Number: PHHY2008FR30793

PATIENT
  Age: 35 Year
  Sex: Male

DRUGS (1)
  1. LEPONEX [Suspect]
     Indication: SCHIZOPHRENIA
     Dosage: 225 MG, QD
     Dates: start: 20081115

REACTIONS (2)
  - CHOLELITHIASIS [None]
  - SURGERY [None]
